FAERS Safety Report 17576786 (Version 1)
Quarter: 2020Q1

REPORT INFORMATION
  Report Type: Spontaneous
  Country: US (occurrence: US)
  Receive Date: 20200324
  Receipt Date: 20200324
  Transmission Date: 20200409
  Serious: No
  Sender: FDA-Public Use
  Company Number: US-ACORDA-ACO_164339_2020

PATIENT
  Age: 64 Year
  Sex: Female

DRUGS (1)
  1. INBRIJA [Suspect]
     Active Substance: LEVODOPA
     Indication: PARKINSON^S DISEASE
     Dosage: 84 MILLIGRAM, UP TO 5 DOSES A DAY
     Dates: start: 20191217

REACTIONS (2)
  - Fall [Unknown]
  - Balance disorder [Not Recovered/Not Resolved]

NARRATIVE: CASE EVENT DATE: 201912
